FAERS Safety Report 8050595-4 (Version None)
Quarter: 2012Q1

REPORT INFORMATION
  Report Type: 
  Country: None (occurrence: None)
  Receive Date: 20120117
  Receipt Date: 20120105
  Transmission Date: 20120608
  Serious: Yes (Hospitalization, Disabling, Other)
  Sender: FDA-Public Use
  Company Number: GB-ASTRAZENECA-2011SE62283

PATIENT
  Age: 50 Year
  Sex: Male

DRUGS (3)
  1. TAMSULOSIN HCL [Concomitant]
  2. ALBUTEROL SULFATE AUTOHALER [Concomitant]
  3. BICALUTAMIDE [Suspect]
     Indication: PROSTATE CANCER
     Route: 048

REACTIONS (5)
  - DILATATION VENTRICULAR [None]
  - OEDEMA PERIPHERAL [None]
  - CARDIOMEGALY [None]
  - DYSPNOEA [None]
  - CARDIAC FAILURE CONGESTIVE [None]
